FAERS Safety Report 8546374-1 (Version None)
Quarter: 2012Q3

REPORT INFORMATION
  Report Type: 
  Country: None (occurrence: None)
  Receive Date: 20120727
  Receipt Date: 20111220
  Transmission Date: 20120928
  Serious: No
  Sender: FDA-Public Use
  Company Number: US-ASTRAZENECA-2011SE77517

PATIENT
  Age: 43 Year
  Sex: Female

DRUGS (9)
  1. SEROQUEL [Suspect]
     Indication: BIPOLAR DISORDER
     Route: 048
  2. DEPAKOTE [Concomitant]
  3. KLONOPIN [Concomitant]
  4. SEROQUEL [Interacting]
     Indication: EATING DISORDER
     Route: 048
  5. HALDOL [Concomitant]
     Dosage: PRN
  6. ZOLOFT [Interacting]
  7. ZOLOFT [Interacting]
  8. LORAZEPAM [Concomitant]
     Dosage: PRN
  9. LITHIUM CARBONATE [Concomitant]

REACTIONS (3)
  - DRUG INTERACTION [None]
  - BLOOD SODIUM DECREASED [None]
  - OFF LABEL USE [None]
